FAERS Safety Report 19839935 (Version 1)
Quarter: 2021Q3

REPORT INFORMATION
  Report Type: Spontaneous
  Country: US (occurrence: US)
  Receive Date: 20210915
  Receipt Date: 20210915
  Transmission Date: 20211014
  Serious: Yes (Other)
  Sender: FDA-Public Use
  Company Number: NVSC2021US201753

PATIENT
  Age: 60 Year
  Sex: Male

DRUGS (2)
  1. PREDNISOLONE. [Suspect]
     Active Substance: PREDNISOLONE
     Indication: VITREOUS FLOATERS
  2. PREDNISOLONE. [Suspect]
     Active Substance: PREDNISOLONE
     Indication: VISUAL IMPAIRMENT
     Dosage: UNK, Q2H
     Route: 065

REACTIONS (2)
  - Product use in unapproved indication [Unknown]
  - Eye infection toxoplasmal [Unknown]
